FAERS Safety Report 7958866-4 (Version None)
Quarter: 2011Q4

REPORT INFORMATION
  Report Type: 
  Country: None (occurrence: None)
  Receive Date: 20111206
  Receipt Date: 20111128
  Transmission Date: 20120403
  Serious: Yes (Death, Congenital Anomaly)
  Sender: FDA-Public Use
  Company Number: FR-UCBSA-046674

PATIENT
  Sex: Female
  Weight: 2.99 kg

DRUGS (1)
  1. KEPPRA [Suspect]
     Indication: IDIOPATHIC GENERALISED EPILEPSY
     Dosage: DAILY DOSE- 3 G
     Route: 064

REACTIONS (8)
  - BRADYCARDIA NEONATAL [None]
  - OXYGEN SATURATION DECREASED [None]
  - FOETAL EXPOSURE DURING PREGNANCY [None]
  - FOETAL HEART RATE ABNORMAL [None]
  - PATENT DUCTUS ARTERIOSUS [None]
  - MALFORMATION VENOUS [None]
  - CYANOSIS NEONATAL [None]
  - ATRIAL SEPTAL DEFECT [None]
